FAERS Safety Report 19350384 (Version 1)
Quarter: 2021Q2

REPORT INFORMATION
  Report Type: Spontaneous
  Country: US (occurrence: US)
  Receive Date: 20210531
  Receipt Date: 20210531
  Transmission Date: 20210717
  Serious: Yes (Hospitalization)
  Sender: FDA-Public Use
  Company Number: US-STRIDES ARCOLAB LIMITED-2020SP016023

PATIENT
  Age: 81 Year
  Sex: Male

DRUGS (8)
  1. VANCOMYCIN [Suspect]
     Active Substance: VANCOMYCIN
     Dosage: 1250 MILLIGRAM, EVERY 12 HRS
     Route: 042
  2. RITUXIMAB. [Concomitant]
     Active Substance: RITUXIMAB
     Indication: PRODUCT USED FOR UNKNOWN INDICATION
     Dosage: 375 MILLIGRAM/SQ. METER, 4 TIMES A WEEK
     Route: 065
  3. RIFAMPIN. [Concomitant]
     Active Substance: RIFAMPIN
     Indication: PRODUCT USED FOR UNKNOWN INDICATION
     Dosage: 300 MILLIGRAM, EVERY 12 HRS
     Route: 042
  4. PREDNISONE. [Concomitant]
     Active Substance: PREDNISONE
     Dosage: 90 MILLIGRAM DAILY
     Route: 065
  5. DAPTOMYCIN. [Concomitant]
     Active Substance: DAPTOMYCIN
     Indication: PRODUCT USED FOR UNKNOWN INDICATION
     Dosage: 8 MILLIGRAM/KILOGRAM, QD
     Route: 042
  6. VANCOMYCIN [Suspect]
     Active Substance: VANCOMYCIN
     Indication: PRODUCT USED FOR UNKNOWN INDICATION
     Dosage: 1500 MILLIGRAM, EVERY 12 HRS
     Route: 042
  7. PREDNISONE. [Concomitant]
     Active Substance: PREDNISONE
     Indication: PRODUCT USED FOR UNKNOWN INDICATION
     Dosage: 1 MILLIGRAM/KILOGRAM
     Route: 065
  8. CEFEPIME [Concomitant]
     Active Substance: CEFEPIME HYDROCHLORIDE
     Indication: PRODUCT USED FOR UNKNOWN INDICATION
     Dosage: 2000 MILLIGRAM, EVERY 8 HRS
     Route: 042

REACTIONS (1)
  - Immune thrombocytopenia [Recovered/Resolved]
